FAERS Safety Report 5266970-7 (Version None)
Quarter: 2007Q1

REPORT INFORMATION
  Report Type: 
  Country: None (occurrence: None)
  Receive Date: 20070313
  Receipt Date: 20070306
  Transmission Date: 20070707
  Serious: Yes (Death)
  Sender: FDA-Public Use
  Company Number: 230525K07USA

PATIENT
  Age: 45 Year
  Sex: Female

DRUGS (4)
  1. REBIF [Suspect]
     Indication: MULTIPLE SCLEROSIS
     Dosage: 44 MCG, 3 IN 1 WEEKS, SUBCUTANEOUS
     Route: 058
     Dates: start: 20030421, end: 20060720
  2. CELEXA [Concomitant]
  3. ADDERALL (OBETROL /01345401/) [Concomitant]
  4. DEPO-PROVERA SUSPENSION/INJ [Concomitant]

REACTIONS (1)
  - ACUTE CORONARY SYNDROME [None]
